FAERS Safety Report 7222744-9 (Version None)
Quarter: 2011Q1

REPORT INFORMATION
  Report Type: 
  Country: None (occurrence: None)
  Receive Date: 20110106
  Receipt Date: 20110106
  Transmission Date: 20110831
  Serious: Yes (Hospitalization)
  Sender: FDA-Public Use
  Company Number: None

PATIENT
  Age: 57 Year
  Sex: Female
  Weight: 75.7507 kg

DRUGS (2)
  1. REMICADE [Suspect]
     Indication: FISTULA
     Dosage: 400MG IV DRIP
     Route: 041
     Dates: start: 20101202, end: 20101202
  2. REMICADE [Suspect]
     Indication: CROHN'S DISEASE
     Dosage: 400MG IV DRIP
     Route: 041
     Dates: start: 20101202, end: 20101202

REACTIONS (11)
  - HALLUCINATION [None]
  - IMPAIRED WORK ABILITY [None]
  - WEIGHT DECREASED [None]
  - POLYARTHRITIS [None]
  - ABDOMINAL PAIN [None]
  - PYREXIA [None]
  - TREMOR [None]
  - CHILLS [None]
  - RENAL FAILURE [None]
  - HYPOXIA [None]
  - IMPAIRED DRIVING ABILITY [None]
